FAERS Safety Report 6902414-4 (Version None)
Quarter: 2010Q3

REPORT INFORMATION
  Report Type: 
  Country: None (occurrence: None)
  Receive Date: 20100803
  Receipt Date: 20080523
  Transmission Date: 20110219
  Serious: No
  Sender: FDA-Public Use
  Company Number: US-PFIZER INC-2008041750

PATIENT
  Sex: Female

DRUGS (3)
  1. LYRICA [Suspect]
     Indication: PAIN
  2. TEGRETOL [Suspect]
     Indication: PAIN
  3. TRAMADOL HYDROCHLORIDE [Suspect]
     Indication: PAIN

REACTIONS (1)
  - THERAPEUTIC RESPONSE DELAYED [None]
